FAERS Safety Report 6044834-9 (Version None)
Quarter: 2009Q1

REPORT INFORMATION
  Report Type: 
  Country: None (occurrence: None)
  Receive Date: 20090121
  Receipt Date: 20090113
  Transmission Date: 20090719
  Serious: Yes (Hospitalization)
  Sender: FDA-Public Use
  Company Number: DE-RANBAXY-2009RR-20555

PATIENT
  Age: 84 Year
  Sex: Female
  Weight: 70.9 kg

DRUGS (9)
  1. LISINOPRIL [Suspect]
     Indication: HYPERTENSION
     Dosage: UNK
     Route: 048
     Dates: end: 20080617
  2. AMLODIPINE [Suspect]
     Indication: HYPERTENSION
     Dosage: 5 MG, BID
     Route: 048
  3. METOPROLOL [Suspect]
     Indication: HYPERTENSION
     Dosage: 100 MG, BID
     Route: 048
  4. MOXONIDINE [Suspect]
     Indication: HYPERTENSION
     Dosage: 0.2 MG, BID
     Route: 048
  5. NITROGLYCERIN [Suspect]
     Indication: HYPERTENSION
     Dosage: 0.41 MG, UNK
     Route: 002
     Dates: end: 20080612
  6. ASPIRIN [Concomitant]
     Indication: INFARCTION
     Dosage: 100 MG, QD
     Route: 048
     Dates: start: 20010101
  7. KEPPRA [Concomitant]
     Indication: INFARCTION
     Dosage: 500 MG, BID
     Route: 048
  8. PANTOZOL [Concomitant]
     Indication: PROPHYLAXIS
     Dosage: 20 MG, QD
     Route: 048
  9. SIMVASTATIN [Concomitant]
     Indication: THROMBOSIS PROPHYLAXIS
     Dosage: 20 MG, QD
     Route: 048

REACTIONS (1)
  - SYNCOPE [None]
